FAERS Safety Report 6253938-7 (Version None)
Quarter: 2009Q3

REPORT INFORMATION
  Report Type: 
  Country: None (occurrence: None)
  Receive Date: 20090702
  Receipt Date: 20090619
  Transmission Date: 20100115
  Serious: Yes (Hospitalization)
  Sender: FDA-Public Use
  Company Number: PHHO2008ES06138

PATIENT
  Sex: Male

DRUGS (15)
  1. CYCLOSPORINE [Suspect]
     Indication: RENAL TRANSPLANT
     Dosage: 125 MG DAILY
     Route: 048
     Dates: start: 20040921, end: 20050128
  2. CYCLOSPORINE [Suspect]
     Dosage: UNKNOWN DOSE
  3. MYCOPHENOLATE MOFETIL [Suspect]
     Dosage: 2 G, QD
     Route: 048
     Dates: start: 20040921
  4. MYCOPHENOLATE MOFETIL [Suspect]
     Dosage: 500 MG, BID
  5. DACLIZUMAB [Suspect]
     Indication: RENAL TRANSPLANT
     Dosage: 75 MG, QD
     Route: 042
     Dates: start: 20040921, end: 20041117
  6. PREDNISOLONE [Suspect]
     Indication: RENAL TRANSPLANT
     Dosage: 10 MG, QD
     Dates: start: 20040924
  7. SIROLIMUS [Suspect]
     Indication: RENAL TRANSPLANT
     Dosage: 2 MG, QD
     Route: 048
     Dates: start: 20040128
  8. SIROLIMUS [Suspect]
     Dosage: 2 MG, QD
     Route: 048
     Dates: start: 20040128
  9. METHYLPREDNISOLONE [Suspect]
  10. FUROSEMIDE INTENSOL [Concomitant]
  11. RANUBER [Concomitant]
  12. AUGMENTIN [Concomitant]
  13. AMLODIPINE BESYLATE [Concomitant]
  14. DARBEPOETIN ALFA [Concomitant]
  15. DOXAZOSIN MESILATE [Concomitant]

REACTIONS (17)
  - BACK PAIN [None]
  - CALCULUS URINARY [None]
  - CHILLS [None]
  - COMPLICATIONS OF TRANSPLANTED KIDNEY [None]
  - CONGENITAL CYSTIC KIDNEY DISEASE [None]
  - CYTOMEGALOVIRUS INFECTION [None]
  - DYSURIA [None]
  - ESCHERICHIA INFECTION [None]
  - HAEMATURIA [None]
  - HEADACHE [None]
  - PERIRENAL HAEMATOMA [None]
  - PSEUDOMONAS INFECTION [None]
  - PYREXIA [None]
  - RENAL ARTERY OCCLUSION [None]
  - RENAL CYST [None]
  - SEPSIS [None]
  - URINARY TRACT INFECTION BACTERIAL [None]
